FAERS Safety Report 5010916-3 (Version None)
Quarter: 2006Q2

REPORT INFORMATION
  Report Type: 
  Country: None (occurrence: None)
  Receive Date: 20060523
  Receipt Date: 20060523
  Transmission Date: 20061013
  Serious: Yes (Death)
  Sender: FDA-Public Use
  Company Number: None

PATIENT
  Age: 77 Year
  Sex: Female

DRUGS (3)
  1. HYDROMORPHONE [Suspect]
     Indication: PAIN
     Dosage: PCA
     Dates: start: 20060106
  2. HYDROMORPHONE [Suspect]
     Indication: PANCREATITIS
     Dosage: PCA
     Dates: start: 20060106
  3. FENTANYL [Suspect]
     Dosage: TOP
     Route: 061
     Dates: start: 20060106

REACTIONS (3)
  - APNOEA [None]
  - BRADYCARDIA [None]
  - PNEUMONIA ASPIRATION [None]
